FAERS Safety Report 5099036-X (Version None)
Quarter: 2006Q3

REPORT INFORMATION
  Report Type: 
  Country: None (occurrence: None)
  Receive Date: 20060731
  Receipt Date: 20060329
  Transmission Date: 20061208
  Serious: Yes (Hospitalization)
  Sender: FDA-Public Use
  Company Number: 223584

PATIENT
  Age: 71 Year
  Sex: Male
  Weight: 82.5 kg

DRUGS (5)
  1. RITUXAN [Suspect]
     Indication: CHRONIC LYMPHOCYTIC LEUKAEMIA
     Dosage: 712 MG, Q3W, INTRAVENOUS
     Route: 042
     Dates: start: 20050616
  2. DAPSONE [Concomitant]
  3. PROTONIX [Concomitant]
  4. LISINOPRIL [Concomitant]
  5. VALTREX [Concomitant]

REACTIONS (2)
  - HYPOXIA [None]
  - LUNG INFILTRATION [None]
